FAERS Safety Report 7513135-1 (Version None)
Quarter: 2011Q2

REPORT INFORMATION
  Report Type: 
  Country: None (occurrence: None)
  Receive Date: 20110531
  Receipt Date: 20110519
  Transmission Date: 20111010
  Serious: Yes (Hospitalization, Other)
  Sender: FDA-Public Use
  Company Number: US-ASTRAZENECA-2010SE49738

PATIENT
  Age: 40 Year
  Sex: Female
  Weight: 63.5 kg

DRUGS (9)
  1. SEROQUEL [Suspect]
     Indication: ANXIETY
     Route: 048
  2. SEROQUEL [Suspect]
     Route: 048
     Dates: start: 20110401
  3. DIPHENHYDRAMINE HCL [Suspect]
     Route: 065
  4. SEROQUEL [Suspect]
     Route: 048
     Dates: start: 20090101, end: 20110328
  5. SEROQUEL [Suspect]
     Route: 048
     Dates: start: 20090101, end: 20110328
  6. LORTAB [Concomitant]
     Indication: PAIN
  7. SEROQUEL [Suspect]
     Indication: SLEEP DISORDER
     Route: 048
  8. SEROQUEL [Suspect]
     Route: 048
     Dates: start: 20110401
  9. XANAX [Concomitant]
     Indication: ANXIETY

REACTIONS (13)
  - NERVOUSNESS [None]
  - UNRESPONSIVE TO STIMULI [None]
  - INFECTION [None]
  - CONVULSION [None]
  - VOMITING [None]
  - AMNESIA [None]
  - RENAL FAILURE [None]
  - INSOMNIA [None]
  - BACK PAIN [None]
  - ANXIETY [None]
  - HEART RATE INCREASED [None]
  - DRUG DOSE OMISSION [None]
  - DIARRHOEA [None]
